FAERS Safety Report 5678079-9 (Version None)
Quarter: 2008Q1

REPORT INFORMATION
  Report Type: 
  Country: None (occurrence: None)
  Receive Date: 20080319
  Receipt Date: 20071101
  Transmission Date: 20080703
  Serious: Yes (Other)
  Sender: FDA-Public Use
  Company Number: WAES 0803USA00751

PATIENT
  Age: 55 Year
  Sex: Male

DRUGS (7)
  1. CRIXIVAN [Suspect]
     Indication: HIV INFECTION
     Dosage: PO
     Route: 048
     Dates: start: 20020101
  2. EFAVIRENZ [Suspect]
     Indication: HIV INFECTION
     Dosage: PO
     Route: 048
     Dates: start: 20020101
  3. DIDANOSINE [Suspect]
     Indication: HIV INFECTION
     Dates: start: 20020101
  4. STAVUDINE [Suspect]
     Indication: HIV INFECTION
     Dates: start: 20020101
  5. LAMIVUDINE [Suspect]
     Indication: HIV INFECTION
     Dates: start: 20020101
  6. ZIDOVUDINE [Suspect]
     Indication: HIV INFECTION
     Dates: start: 20020101
  7. RITONAVIR [Suspect]
     Indication: HIV INFECTION
     Dates: start: 20020101

REACTIONS (2)
  - DRUG RESISTANCE [None]
  - LIPOATROPHY [None]
